FAERS Safety Report 4423620-7 (Version None)
Quarter: 2004Q3

REPORT INFORMATION
  Report Type: 
  Country: None (occurrence: None)
  Receive Date: 20040714
  Receipt Date: 20030603
  Transmission Date: 20050211
  Serious: No
  Sender: FDA-Public Use
  Company Number: 200314487US

PATIENT
  Age: 65 Year
  Sex: Female

DRUGS (1)
  1. TAXOTERE [Suspect]
     Indication: BREAST CANCER
     Dosage: 10 MG/M**2 Q3W

REACTIONS (1)
  - RASH PAPULAR [None]
